FAERS Safety Report 9464670 (Version 3)
Quarter: 2014Q3

REPORT INFORMATION
  Report Type: Spontaneous
  Country: BR (occurrence: BR)
  Receive Date: 20130819
  Receipt Date: 20140718
  Transmission Date: 20150326
  Serious: Yes (Hospitalization)
  Sender: FDA-Public Use
  Company Number: BR-009507513-1308BRA006838

PATIENT
  Age: 36 Year
  Sex: Female
  Weight: 59 kg

DRUGS (1)
  1. NUVARING [Suspect]
     Active Substance: ETHINYL ESTRADIOL\ETONOGESTREL
     Indication: CONTRACEPTION
     Dosage: UNK
     Route: 067
     Dates: start: 201012

REACTIONS (18)
  - Hypotonia [Unknown]
  - Menstrual disorder [Not Recovered/Not Resolved]
  - Headache [Recovered/Resolved]
  - Metrorrhagia [Recovered/Resolved]
  - Blood iron decreased [Not Recovered/Not Resolved]
  - Incorrect drug administration duration [Unknown]
  - Malabsorption [Not Recovered/Not Resolved]
  - Menorrhagia [Not Recovered/Not Resolved]
  - Abnormal withdrawal bleeding [Not Recovered/Not Resolved]
  - Withdrawal bleed [Recovered/Resolved]
  - Vitamin B12 decreased [Not Recovered/Not Resolved]
  - Menstruation irregular [Not Recovered/Not Resolved]
  - Hypovitaminosis [Not Recovered/Not Resolved]
  - Drug administration error [Unknown]
  - Gallbladder operation [Recovered/Resolved]
  - Menorrhagia [Not Recovered/Not Resolved]
  - Cholelithiasis [Recovered/Resolved]
  - Incorrect drug administration duration [Unknown]

NARRATIVE: CASE EVENT DATE: 201012
